FAERS Safety Report 11812730 (Version 1)
Quarter: 2015Q4

REPORT INFORMATION
  Report Type: Spontaneous
  Country: UY (occurrence: UY)
  Receive Date: 20151209
  Receipt Date: 20151209
  Transmission Date: 20160305
  Serious: Yes (Hospitalization)
  Sender: FDA-Public Use
  Company Number: UY-ROCHE-1673385

PATIENT
  Sex: Female
  Weight: 68 kg

DRUGS (4)
  1. PREGABALINE [Suspect]
     Active Substance: PREGABALIN
     Indication: INTERVERTEBRAL DISC PROTRUSION
     Route: 065
  2. METFORMIN [Concomitant]
     Active Substance: METFORMIN HYDROCHLORIDE
     Indication: HYPERINSULINAEMIA
     Route: 065
  3. XENICAL [Suspect]
     Active Substance: ORLISTAT
     Indication: OVERWEIGHT
     Route: 048
  4. ATORVASTATIN [Concomitant]
     Active Substance: ATORVASTATIN
     Indication: HYPERCHOLESTEROLAEMIA

REACTIONS (1)
  - Bone pain [Recovered/Resolved]
